FAERS Safety Report 24972075 (Version 1)
Quarter: 2025Q1

REPORT INFORMATION
  Report Type: Spontaneous
  Country: US (occurrence: US)
  Receive Date: 20250214
  Receipt Date: 20250214
  Transmission Date: 20250408
  Serious: No
  Sender: GALDERMA
  Company Number: US-GALDERMA-US2025001312

PATIENT

DRUGS (8)
  1. PROACTIV MD ADAPALENE ACNE TREATMENT [Suspect]
     Active Substance: ADAPALENE
     Indication: Acne
     Route: 061
     Dates: start: 20241202, end: 20241224
  2. Proactiv MD Ultra Gentle Cleanser [Concomitant]
     Indication: Acne
     Route: 061
     Dates: start: 20241202, end: 20241224
  3. COSMETICS [Concomitant]
     Active Substance: COSMETICS
     Indication: Acne
     Route: 061
     Dates: start: 20241202, end: 20241224
  4. COSMETICS [Concomitant]
     Active Substance: COSMETICS
     Indication: Acne
     Route: 061
     Dates: start: 20241202, end: 20241224
  5. COSMETICS [Concomitant]
     Active Substance: COSMETICS
     Indication: Acne
     Route: 061
     Dates: start: 20241202, end: 20241224
  6. LEXAPRO [Concomitant]
     Active Substance: ESCITALOPRAM OXALATE
     Indication: Product used for unknown indication
  7. VITAMIN D [Concomitant]
     Active Substance: VITAMIN D NOS
     Indication: Product used for unknown indication
  8. VITAMIN B [Concomitant]
     Active Substance: VITAMIN B
     Indication: Product used for unknown indication

REACTIONS (1)
  - Skin burning sensation [Recovered/Resolved]

NARRATIVE: CASE EVENT DATE: 20241204
